FAERS Safety Report 5328408-0 (Version None)
Quarter: 2007Q2

REPORT INFORMATION
  Report Type: 
  Country: None (occurrence: None)
  Receive Date: 20070515
  Receipt Date: 20070515
  Transmission Date: 20071010
  Serious: Yes (Other)
  Sender: FDA-Public Use
  Company Number: None

PATIENT
  Age: 17 Year
  Sex: Female
  Weight: 43.5453 kg

DRUGS (1)
  1. OXYBUTYNIN ER 10MG MYLA [Suspect]
     Indication: NEUROGENIC BLADDER
     Dosage: 2 TABLET ONE TIME DAY PO
     Route: 048
     Dates: start: 20070101, end: 20070514

REACTIONS (3)
  - DRUG EFFECT DECREASED [None]
  - PHARMACEUTICAL PRODUCT COMPLAINT [None]
  - URINARY INCONTINENCE [None]
